FAERS Safety Report 8589396 (Version 4)
Quarter: 2012Q4

REPORT INFORMATION
  Report Type: Report from Study
  Country: JP (occurrence: JP)
  Receive Date: 20120531
  Receipt Date: 20120924
  Transmission Date: 20130627
  Serious: Yes (Hospitalization, Other)
  Sender: FDA-Public Use
  Company Number: JP-ABBOTT-12P-087-0939029-00

PATIENT
  Age: 36 Year
  Sex: Male

DRUGS (7)
  1. HUMIRA 40 MG/ 0.8 ML PRE-FILLED SYRINGE [Suspect]
     Indication: CROHN^S DISEASE
     Route: 058
     Dates: start: 20110325, end: 20110325
  2. HUMIRA 40 MG/ 0.8 ML PRE-FILLED SYRINGE [Suspect]
     Dates: start: 20110407, end: 20110407
  3. HUMIRA 40 MG/ 0.8 ML PRE-FILLED SYRINGE [Suspect]
     Dates: start: 20110421
  4. PARENTERAL NUTRITION [Concomitant]
     Indication: CROHN^S DISEASE
     Route: 048
  5. CIPROFLOXACIN [Concomitant]
     Indication: CROHN^S DISEASE
     Route: 048
     Dates: start: 20110407
  6. MESALAZINE [Concomitant]
     Indication: CROHN^S DISEASE
     Route: 048
  7. URSODEOXYCHOLIC ACID [Concomitant]
     Indication: PRODUCT USED FOR UNKNOWN INDICATION
     Route: 048
     Dates: end: 20110830

REACTIONS (3)
  - Haemorrhoids [Recovering/Resolving]
  - Intestinal stenosis [Recovering/Resolving]
  - Abdominal pain [Recovering/Resolving]
